FAERS Safety Report 15276642 (Version 1)
Quarter: 2018Q3

REPORT INFORMATION
  Report Type: Report from Study
  Country: None (occurrence: CA)
  Receive Date: 20180814
  Receipt Date: 20180814
  Transmission Date: 20181010
  Serious: Yes (Hospitalization, Other)
  Sender: FDA-Public Use
  Company Number: CA-ABBVIE-18S-028-2447159-00

PATIENT
  Age: 64 Year
  Sex: Male
  Weight: 99 kg

DRUGS (1)
  1. LUPRON DEPOT [Suspect]
     Active Substance: LEUPROLIDE ACETATE
     Indication: PROSTATE CANCER
     Route: 030
     Dates: start: 20140501

REACTIONS (1)
  - Spinal column stenosis [Unknown]

NARRATIVE: CASE EVENT DATE: 20180710
